FAERS Safety Report 10632114 (Version 1)
Quarter: 2014Q4

REPORT INFORMATION
  Report Type: Spontaneous
  Country: BE (occurrence: None)
  Receive Date: 20141203
  Receipt Date: 20141203
  Transmission Date: 20150529
  Serious: Yes (Congenital Anomaly)
  Sender: FDA-Public Use
  Company Number: 2014/080

PATIENT
  Sex: Male
  Weight: 3.85 kg

DRUGS (1)
  1. VALPROIC ACID (NO PREF. NAME) [Suspect]
     Active Substance: VALPROIC ACID
     Dosage: OD

REACTIONS (11)
  - Prominent epicanthal folds [None]
  - Autism [None]
  - Motor developmental delay [None]
  - Dysmorphism [None]
  - Musculoskeletal disorder [None]
  - Hypertonic bladder [None]
  - Foetal exposure during pregnancy [None]
  - Speech disorder developmental [None]
  - Deafness unilateral [None]
  - Hypertelorism of orbit [None]
  - Mentally late developer [None]
